FAERS Safety Report 4855488-9 (Version None)
Quarter: 2005Q4

REPORT INFORMATION
  Report Type: 
  Country: None (occurrence: None)
  Receive Date: 20051214
  Receipt Date: 20051205
  Transmission Date: 20060501
  Serious: Yes (Hospitalization)
  Sender: FDA-Public Use
  Company Number: 2005-09-1544

PATIENT
  Age: 63 Year
  Sex: Male
  Weight: 112.4921 kg

DRUGS (14)
  1. INTEGRILIN [Suspect]
     Indication: ACUTE CORONARY SYNDROME
     Dosage: SEE IMAGE
     Route: 042
     Dates: start: 20050411, end: 20050412
  2. INTEGRILIN [Suspect]
     Indication: ACUTE CORONARY SYNDROME
     Dosage: SEE IMAGE
     Route: 042
     Dates: start: 20050411, end: 20050414
  3. INTEGRILIN [Suspect]
     Indication: ACUTE CORONARY SYNDROME
     Dosage: SEE IMAGE
     Route: 042
     Dates: start: 20050412, end: 20050414
  4. ANGIOMAX [Suspect]
     Indication: ACUTE CORONARY SYNDROME
     Dosage: SEE IMAGE
     Route: 042
     Dates: start: 20050411, end: 20050411
  5. ANGIOMAX [Suspect]
     Indication: ACUTE CORONARY SYNDROME
     Dosage: SEE IMAGE
     Route: 042
     Dates: start: 20050411, end: 20050414
  6. ANGIOMAX [Suspect]
     Indication: ACUTE CORONARY SYNDROME
     Dosage: SEE IMAGE
     Route: 042
     Dates: start: 20050411, end: 20050414
  7. DOXAZOSIN MYSYLATE [Concomitant]
  8. INDAPAMIDE [Concomitant]
  9. SIMVASTATIN [Concomitant]
  10. FUROSEMIDE [Concomitant]
  11. LEVOFLOXACIN [Concomitant]
  12. ZETIA [Concomitant]
  13. DILTIAZEM HCL [Concomitant]
  14. GLIMEPIRIDE [Concomitant]

REACTIONS (2)
  - CONDITION AGGRAVATED [None]
  - RENAL FAILURE [None]
